FAERS Safety Report 19260215 (Version 1)
Quarter: 2021Q2

REPORT INFORMATION
  Report Type: Report from Study
  Country: None (occurrence: FR)
  Receive Date: 20210514
  Receipt Date: 20210514
  Transmission Date: 20210717
  Serious: Yes (Hospitalization)
  Sender: FDA-Public Use
  Company Number: FR-ABBVIE-21K-056-3900712-00

PATIENT

DRUGS (2)
  1. HUMIRA [Suspect]
     Active Substance: ADALIMUMAB
     Indication: CROHN^S DISEASE
     Route: 058
  2. HUMIRA [Suspect]
     Active Substance: ADALIMUMAB
     Route: 058
     Dates: end: 202010

REACTIONS (6)
  - Therapeutic product effect decreased [Unknown]
  - Hyperthermia [Unknown]
  - Intestinal stenosis [Unknown]
  - Injection site pain [Recovering/Resolving]
  - Inflammation [Unknown]
  - Weight decreased [Unknown]
